FAERS Safety Report 6550756-7 (Version None)
Quarter: 2010Q1

REPORT INFORMATION
  Report Type: 
  Country: None (occurrence: None)
  Receive Date: 20100125
  Receipt Date: 20100111
  Transmission Date: 20100710
  Serious: Yes (Other)
  Sender: FDA-Public Use
  Company Number: PHEH2010US00620

PATIENT
  Sex: Female

DRUGS (9)
  1. DIOVAN HCT [Suspect]
     Indication: HYPERTENSION
     Dosage: 80/12.5 MG, 1 PILL QD
     Route: 048
     Dates: start: 20030326
  2. LEVOTHYROXINE SODIUM [Concomitant]
     Dosage: 0.05 MG, UNK
  3. CYCLOBENZAPRINE HYDROCHLORIDE [Concomitant]
     Dosage: 10 MG, UNK
  4. ATENOLOL [Concomitant]
     Dosage: 25 MG, UNK
  5. SYNTHROID [Concomitant]
  6. GLYBURIDE [Concomitant]
  7. DARVOCET-N 100 [Concomitant]
  8. TORISEL [Concomitant]
  9. POTASSIUM [Concomitant]

REACTIONS (1)
  - RENAL CANCER [None]
